FAERS Safety Report 6698323-9 (Version None)
Quarter: 2010Q2

REPORT INFORMATION
  Report Type: 
  Country: None (occurrence: None)
  Receive Date: 20100426
  Receipt Date: 20100426
  Transmission Date: 20101027
  Serious: Yes (Other)
  Sender: FDA-Public Use
  Company Number: None

PATIENT
  Age: 32 Year
  Sex: Female
  Weight: 79.3795 kg

DRUGS (2)
  1. KENALOG [Suspect]
     Indication: URTICARIA
     Dates: start: 20100228, end: 20100329
  2. BENADRYL [Suspect]

REACTIONS (4)
  - ANXIETY [None]
  - INJECTION SITE ATROPHY [None]
  - MENORRHAGIA [None]
  - NAUSEA [None]
